FAERS Safety Report 5679053-9 (Version None)
Quarter: 2008Q1

REPORT INFORMATION
  Report Type: 
  Country: None (occurrence: None)
  Receive Date: 20080321
  Receipt Date: 20080307
  Transmission Date: 20080703
  Serious: Yes (Hospitalization)
  Sender: FDA-Public Use
  Company Number: TRP_01088_2008

PATIENT
  Sex: Female

DRUGS (4)
  1. RIBASPHERE [Suspect]
     Indication: HEPATITIS C VIRUS
     Dosage: (1000 MG ORAL)
     Route: 048
     Dates: start: 20071109, end: 20071228
  2. PEGASYS [Suspect]
     Indication: HEPATITIS C VIRUS
     Dosage: (180 UG 1X/WEEK SUBCUTANEOUS)
     Route: 058
     Dates: start: 20071109, end: 20071228
  3. RIBASPHERE [Suspect]
     Indication: HEPATITIS C VIRUS
     Dosage: (1000 MG ORAL)
     Route: 048
     Dates: start: 20080204
  4. PEGASYS [Suspect]
     Indication: HEPATITIS C VIRUS
     Dosage: (180 UG 1X/WEEK SUBCUTANEOUS)
     Route: 058
     Dates: start: 20080204

REACTIONS (5)
  - BLOOD COUNT ABNORMAL [None]
  - PLATELET COUNT DECREASED [None]
  - PLEURISY [None]
  - PULMONARY OEDEMA [None]
  - STAPHYLOCOCCAL INFECTION [None]
